FAERS Safety Report 26155999 (Version 1)
Quarter: 2025Q4

REPORT INFORMATION
  Report Type: Spontaneous
  Country: US (occurrence: US)
  Receive Date: 20251215
  Receipt Date: 20251215
  Transmission Date: 20260117
  Serious: No
  Sender: NOVITIUM PHARMA
  Company Number: US-NOVITIUM PHARMA-000368

PATIENT
  Age: 53 Year
  Sex: Male

DRUGS (2)
  1. MELOXICAM [Suspect]
     Active Substance: MELOXICAM
     Indication: Product used for unknown indication
  2. AVAPRITINIB [Concomitant]
     Active Substance: AVAPRITINIB
     Indication: Mastocytoma

REACTIONS (8)
  - Thinking abnormal [Unknown]
  - Thought blocking [Unknown]
  - Communication disorder [Unknown]
  - Anxiety [Unknown]
  - Depression [Unknown]
  - Myalgia [Unknown]
  - Pain [Unknown]
  - Arthralgia [Unknown]
